FAERS Safety Report 21763464 (Version 1)
Quarter: 2022Q4

REPORT INFORMATION
  Report Type: Spontaneous
  Country: PT (occurrence: PT)
  Receive Date: 20221221
  Receipt Date: 20221221
  Transmission Date: 20230113
  Serious: Yes (Hospitalization, Other)
  Sender: FDA-Public Use
  Company Number: PT-SUN PHARMACEUTICAL INDUSTRIES LTD-2022R1-369693

PATIENT
  Age: 45 Year
  Sex: Female

DRUGS (2)
  1. ZOLPIDEM [Suspect]
     Active Substance: ZOLPIDEM TARTRATE
     Indication: Sleep disorder
     Dosage: 50-60 MG, DAILY
     Route: 065
  2. ZOLPIDEM [Suspect]
     Active Substance: ZOLPIDEM TARTRATE
     Dosage: 200 MILLIGRAM
     Route: 065

REACTIONS (12)
  - Drug dependence [Unknown]
  - Toxicity to various agents [Unknown]
  - Psychomotor retardation [Recovering/Resolving]
  - Speech disorder [Recovering/Resolving]
  - Intraocular pressure test abnormal [Recovering/Resolving]
  - Indifference [Recovering/Resolving]
  - Cognitive disorder [Recovering/Resolving]
  - Insomnia [Recovering/Resolving]
  - Generalised tonic-clonic seizure [Unknown]
  - Drug withdrawal convulsions [Recovering/Resolving]
  - Organic brain syndrome [Recovering/Resolving]
  - Frontotemporal dementia [Recovering/Resolving]
